FAERS Safety Report 4297643-5 (Version None)
Quarter: 2004Q1

REPORT INFORMATION
  Report Type: 
  Country: None (occurrence: None)
  Receive Date: 20040126
  Receipt Date: 20031203
  Transmission Date: 20041129
  Serious: No
  Sender: FDA-Public Use
  Company Number: USA031151768

PATIENT
  Age: 12 Year
  Sex: Male
  Weight: 39 kg

DRUGS (1)
  1. STRATTERA [Suspect]
     Indication: ATTENTION DEFICIT/HYPERACTIVITY DISORDER
     Dosage: 120 MG/DAY
     Dates: start: 20030901

REACTIONS (4)
  - DRUG INEFFECTIVE [None]
  - HEART RATE INCREASED [None]
  - OVERDOSE [None]
  - SOMNOLENCE [None]
